FAERS Safety Report 10421206 (Version 2)
Quarter: 2014Q4

REPORT INFORMATION
  Report Type: Spontaneous
  Country: US (occurrence: US)
  Receive Date: 20140830
  Receipt Date: 20141013
  Transmission Date: 20150528
  Serious: Yes (Other)
  Sender: FDA-Public Use
  Company Number: US-009507513-1408USA014309

PATIENT
  Age: 28 Year
  Sex: Female
  Weight: 91.61 kg

DRUGS (2)
  1. NEXPLANON [Suspect]
     Active Substance: ETONOGESTREL
     Indication: CONTRACEPTION
     Dosage: 1 ROD
     Route: 059
     Dates: start: 20140508
  2. TOPAMAX [Concomitant]
     Active Substance: TOPIRAMATE
     Dosage: UNK

REACTIONS (6)
  - Discomfort [Recovering/Resolving]
  - Weight decreased [Recovering/Resolving]
  - Device dislocation [Recovering/Resolving]
  - Implant site bruising [Recovered/Resolved]
  - Implant site pain [Recovered/Resolved]
  - Implant site haemorrhage [Recovering/Resolving]

NARRATIVE: CASE EVENT DATE: 201405
